FAERS Safety Report 9821176 (Version 1)
Quarter: 2014Q1

REPORT INFORMATION
  Report Type: Spontaneous
  Country: BR (occurrence: BR)
  Receive Date: 20140116
  Receipt Date: 20140116
  Transmission Date: 20141002
  Serious: Yes (Other)
  Sender: FDA-Public Use
  Company Number: PHHY2014BR003499

PATIENT
  Sex: Female

DRUGS (2)
  1. TEGRETOL [Suspect]
     Indication: INFLAMMATION
     Dosage: UNK UKN, UNK
  2. TEGRETOL [Suspect]
     Indication: OFF LABEL USE

REACTIONS (7)
  - Mass [Unknown]
  - Hypersensitivity [Unknown]
  - Pruritus [Unknown]
  - Pigmentation disorder [Unknown]
  - Rash [Unknown]
  - Swelling face [Unknown]
  - Eye inflammation [Unknown]
